FAERS Safety Report 6180767-5 (Version None)
Quarter: 2009Q2

REPORT INFORMATION
  Report Type: 
  Country: None (occurrence: None)
  Receive Date: 20090506
  Receipt Date: 20081016
  Transmission Date: 20091009
  Serious: No
  Sender: FDA-Public Use
  Company Number: A0752400A

PATIENT
  Age: 75 Year
  Sex: Male

DRUGS (2)
  1. AMOXIL [Suspect]
     Dosage: 500MG TWICE PER DAY
     Route: 048
     Dates: start: 20070701
  2. CIPROFLOXACIN HCL [Concomitant]

REACTIONS (1)
  - CHROMATURIA [None]
